FAERS Safety Report 15474018 (Version 2)
Quarter: 2018Q4

REPORT INFORMATION
  Report Type: Spontaneous
  Country: US (occurrence: US)
  Receive Date: 20181008
  Receipt Date: 20181219
  Transmission Date: 20190205
  Serious: Yes (Other)
  Sender: FDA-Public Use
  Company Number: US-SA-2018SA275518

PATIENT
  Age: 52 Year
  Sex: Female
  Weight: 73.02 kg

DRUGS (13)
  1. DEXAMETHASONE;NYSTATIN [Concomitant]
     Dosage: UNK
     Dates: start: 201008, end: 201012
  2. DECADRON [Concomitant]
     Active Substance: DEXAMETHASONE
  3. ADRIAMYCIN [Concomitant]
     Active Substance: DOXORUBICIN HYDROCHLORIDE
  4. NEULASTA [Concomitant]
     Active Substance: PEGFILGRASTIM
  5. ZOFRAN [Concomitant]
     Active Substance: ONDANSETRON HYDROCHLORIDE
  6. ALOXI [Concomitant]
     Active Substance: PALONOSETRON HYDROCHLORIDE
  7. PROCRIT [Concomitant]
     Active Substance: ERYTHROPOIETIN
  8. HEPARIN [Concomitant]
     Active Substance: HEPARIN SODIUM
  9. TAXOTERE [Suspect]
     Active Substance: DOCETAXEL
     Indication: BREAST CANCER FEMALE
     Dosage: 134 MG, Q3W
     Route: 042
     Dates: start: 20101020, end: 20101020
  10. NEOSAR [Concomitant]
     Active Substance: CYCLOPHOSPHAMIDE
  11. TAXOTERE [Suspect]
     Active Substance: DOCETAXEL
     Dosage: 134 MG
     Route: 042
     Dates: start: 20110113, end: 20110113
  12. CYTOXAN [Concomitant]
     Active Substance: CYCLOPHOSPHAMIDE
  13. EMEND [Concomitant]
     Active Substance: APREPITANT

REACTIONS (2)
  - Alopecia [Recovering/Resolving]
  - Psychological trauma [Unknown]

NARRATIVE: CASE EVENT DATE: 201011
